FAERS Safety Report 12632536 (Version 2)
Quarter: 2016Q3

REPORT INFORMATION
  Report Type: Spontaneous
  Country: US (occurrence: US)
  Receive Date: 20160808
  Receipt Date: 20160808
  Transmission Date: 20161109
  Serious: No
  Sender: FDA-Public Use
  Company Number: US-BEH-2015055423

PATIENT
  Sex: Female
  Weight: 101 kg

DRUGS (36)
  1. NEURONTIN [Concomitant]
     Active Substance: GABAPENTIN
  2. ROPINIROLE. [Concomitant]
     Active Substance: ROPINIROLE
  3. GAS-X [Concomitant]
     Active Substance: DIMETHICONE
  4. CLONAZEPAM. [Concomitant]
     Active Substance: CLONAZEPAM
  5. POTASSIUM CHLORIDE. [Concomitant]
     Active Substance: POTASSIUM CHLORIDE
  6. LEVOTHYROXINE. [Concomitant]
     Active Substance: LEVOTHYROXINE
  7. ATENOLOL. [Concomitant]
     Active Substance: ATENOLOL
  8. LISINOPRIL. [Concomitant]
     Active Substance: LISINOPRIL
  9. HIZENTRA [Suspect]
     Active Substance: HUMAN IMMUNOGLOBULIN G
     Indication: IMMUNODEFICIENCY COMMON VARIABLE
     Route: 058
  10. EPIPEN [Concomitant]
     Active Substance: EPINEPHRINE
  11. VITAMIN D [Concomitant]
     Active Substance: CHOLECALCIFEROL
  12. CALCIUM/MAGNESIUM/ZINC [Concomitant]
  13. ALENDRONATE SODIUM. [Concomitant]
     Active Substance: ALENDRONATE SODIUM
  14. DIPHENHYDRAMINE. [Concomitant]
     Active Substance: DIPHENHYDRAMINE
  15. DAYPRO [Concomitant]
     Active Substance: OXAPROZIN
  16. VITAMIN B COMPLEX [Concomitant]
     Active Substance: CYANOCOBALAMIN\DEXPANTHENOL\NIACINAMIDE\PYRIDOXINE HYDROCHLORIDE\RIBOFLAVIN 5^-PHOSPHATE SODIUM\THIAMINE HYDROCHLORIDE\VITAMIN B COMPLEX
  17. FISH OIL [Concomitant]
     Active Substance: FISH OIL
  18. PLAQUENIL [Concomitant]
     Active Substance: HYDROXYCHLOROQUINE SULFATE
  19. ATORVASTATIN [Concomitant]
     Active Substance: ATORVASTATIN
  20. GLUCOSAMINE-CHONDR [Concomitant]
  21. FLECTOR [Concomitant]
     Active Substance: DICLOFENAC EPOLAMINE
  22. METHOTREXATE. [Concomitant]
     Active Substance: METHOTREXATE
  23. COMPLETE MULTIVITAMIN [Concomitant]
     Active Substance: VITAMINS
  24. DIPHENHYDRAMINE. [Concomitant]
     Active Substance: DIPHENHYDRAMINE
  25. VENTOLIN [Concomitant]
     Active Substance: ALBUTEROL SULFATE
  26. TRAMADOL. [Concomitant]
     Active Substance: TRAMADOL
  27. NEXIUM [Concomitant]
     Active Substance: ESOMEPRAZOLE MAGNESIUM
  28. EPIPEN [Concomitant]
     Active Substance: EPINEPHRINE
  29. CYMBALTA [Concomitant]
     Active Substance: DULOXETINE HYDROCHLORIDE
  30. HIZENTRA [Suspect]
     Active Substance: HUMAN IMMUNOGLOBULIN G
     Route: 058
  31. MINOCYCLINE [Concomitant]
     Active Substance: MINOCYCLINE\MINOCYCLINE HYDROCHLORIDE
  32. SULFASALAZINE. [Concomitant]
     Active Substance: SULFASALAZINE
  33. CEPHALEXIN. [Concomitant]
     Active Substance: CEPHALEXIN
  34. FOLIC ACID. [Concomitant]
     Active Substance: FOLIC ACID
  35. PULMICORT TURBUHALER [Concomitant]
     Active Substance: BUDESONIDE
  36. TYLENOL EX-STR [Concomitant]

REACTIONS (1)
  - Cystitis [Unknown]
